FAERS Safety Report 9462106 (Version 2)
Quarter: 2013Q3

REPORT INFORMATION
  Report Type: Spontaneous
  Country: AU (occurrence: AU)
  Receive Date: 20130816
  Receipt Date: 20130916
  Transmission Date: 20140515
  Serious: Yes (Other)
  Sender: FDA-Public Use
  Company Number: AU-ELI_LILLY_AND_COMPANY-AU201308003388

PATIENT
  Age: 33 Year
  Sex: Female

DRUGS (4)
  1. CYMBALTA [Suspect]
     Indication: DEPRESSION
     Dosage: 60 MG, QD
     Route: 048
     Dates: start: 20130109
  2. CYMBALTA [Suspect]
     Indication: HEADACHE
  3. LEVLEN ED [Concomitant]
     Dosage: UNK, UNKNOWN
  4. NASONEX [Concomitant]
     Dosage: UNK, UNKNOWN

REACTIONS (3)
  - Hypersensitivity [Unknown]
  - Pharyngeal oedema [Unknown]
  - Eyelid oedema [Unknown]
